FAERS Safety Report 20834507 (Version 1)
Quarter: 2022Q2

REPORT INFORMATION
  Report Type: Spontaneous
  Country: US (occurrence: None)
  Receive Date: 20220513
  Receipt Date: 20220513
  Transmission Date: 20220720
  Serious: Yes (Hospitalization)
  Sender: FDA-Public Use
  Company Number: None

PATIENT
  Sex: Male

DRUGS (7)
  1. INLYTA [Suspect]
     Active Substance: AXITINIB
     Indication: Renal cancer
     Dosage: FREQUENCY : TWICE A DAY;?
     Route: 048
     Dates: start: 20211023, end: 20220511
  2. CYCLOBENZAPRINE [Concomitant]
     Active Substance: CYCLOBENZAPRINE
  3. COLACE [Concomitant]
     Active Substance: DOCUSATE SODIUM
  4. INDOMETHACIN [Concomitant]
     Active Substance: INDOMETHACIN
  5. LEVOTHYROXINE [Concomitant]
     Active Substance: LEVOTHYROXINE
  6. VITAMINS [Concomitant]
     Active Substance: VITAMINS
  7. OXYCODONE [Concomitant]
     Active Substance: OXYCODONE

REACTIONS (1)
  - Fatigue [None]
